FAERS Safety Report 8763699 (Version 2)
Quarter: 2012Q4

REPORT INFORMATION
  Report Type: 
  Country: DK (occurrence: DK)
  Receive Date: 20120828
  Receipt Date: 20120828
  Transmission Date: 20130627
  Serious: Yes (Other)
  Sender: FDA-Public Use
  Company Number: DK-B.I. PHARMACEUTICALS,INC./RIDGEFIELD-2012-SW-00587DB

PATIENT
  Age: 70 Year
  Sex: Male

DRUGS (11)
  1. DABIGATRAN [Suspect]
     Indication: ATRIAL FIBRILLATION
     Dosage: 300 mg
     Route: 048
     Dates: start: 20120713, end: 20120714
  2. CLOPIDOGREL [Suspect]
     Indication: THROMBOSIS PROPHYLAXIS
     Dosage: 75 mg
     Route: 048
     Dates: start: 20120604, end: 20120713
  3. BURANA [Suspect]
     Indication: PAIN
     Dosage: 1200 mg
     Route: 048
     Dates: start: 20120711, end: 20120713
  4. HYDROCORTISONE (HYDROCORTISONE ACETATE) [Suspect]
     Indication: ORAL CANDIDIASIS
     Route: 065
     Dates: start: 20120703, end: 20120715
  5. SIMVASTATIN [Concomitant]
     Indication: HYPERCHOLESTEROLAEMIA
  6. SELO-ZOK [Concomitant]
     Indication: PRODUCT USED FOR UNKNOWN INDICATION
  7. ENALAPRIL [Concomitant]
     Indication: HYPERTENSION
  8. FURIX [Concomitant]
     Indication: PRODUCT USED FOR UNKNOWN INDICATION
  9. PARACETAMOL [Concomitant]
     Indication: PRODUCT USED FOR UNKNOWN INDICATION
  10. KALEORID [Concomitant]
     Indication: MINERAL SUPPLEMENTATION
  11. PIVMECILLINAM [Concomitant]
     Indication: URINARY TRACT INFECTION

REACTIONS (2)
  - Conjunctival haemorrhage [Not Recovered/Not Resolved]
  - Drug interaction [Unknown]
